FAERS Safety Report 9543052 (Version 1)
Quarter: 2013Q2

REPORT INFORMATION
  Report Type: Spontaneous
  Country: US (occurrence: None)
  Receive Date: 20130524
  Receipt Date: 20130524
  Transmission Date: 20140414
  Serious: Yes (Other)
  Sender: FDA-Public Use
  Company Number: PHEH2013US002885

PATIENT
  Sex: Female

DRUGS (5)
  1. GILENYA [Suspect]
     Indication: MULTIPLE SCLEROSIS
     Route: 048
     Dates: start: 20110628
  2. BACLOFEN (BACLOFEN) [Concomitant]
  3. LEXAPRO (ESCITALOPRAM OXALATE) [Concomitant]
  4. AMPYRA (FAMPRIDINE) [Concomitant]
  5. OXYBUTYNIN (OXYBUTYNIN) [Concomitant]

REACTIONS (1)
  - Dysgraphia [None]
